FAERS Safety Report 4598341-0 (Version None)
Quarter: 2005Q1

REPORT INFORMATION
  Report Type: 
  Country: None (occurrence: None)
  Receive Date: 20050302
  Receipt Date: 20050218
  Transmission Date: 20050727
  Serious: Yes (Death)
  Sender: FDA-Public Use
  Company Number: MEDI-0002857

PATIENT
  Age: 19 Month
  Sex: Female
  Weight: 9 kg

DRUGS (13)
  1. SYNAGIS [Suspect]
     Indication: ANTIVIRAL PROPHYLAXIS
     Dosage: SEE IMAGE
     Route: 030
     Dates: start: 20041013, end: 20041209
  2. SYNAGIS [Suspect]
     Indication: ANTIVIRAL PROPHYLAXIS
     Dosage: SEE IMAGE
     Route: 030
     Dates: start: 20041013
  3. SYNAGIS [Suspect]
     Indication: ANTIVIRAL PROPHYLAXIS
     Dosage: SEE IMAGE
     Route: 030
     Dates: start: 20041111
  4. SYNAGIS [Suspect]
  5. SYNAGIS [Suspect]
  6. SYNAGIS [Suspect]
  7. SYNAGIS [Suspect]
  8. SYNAGIS [Suspect]
  9. PULMICORT [Concomitant]
  10. XOPENEX [Concomitant]
  11. REGLAN [Concomitant]
  12. PREVACID [Concomitant]
  13. TOBRAMYCIN [Concomitant]

REACTIONS (2)
  - LETHARGY [None]
  - PYREXIA [None]
